FAERS Safety Report 5349514-0 (Version None)
Quarter: 2007Q2

REPORT INFORMATION
  Report Type: 
  Country: None (occurrence: None)
  Receive Date: 20070504
  Receipt Date: 20061024
  Transmission Date: 20071010
  Serious: Yes (Other)
  Sender: FDA-Public Use
  Company Number: PHEH2006US13039

PATIENT

DRUGS (1)
  1. DIOVAN HCT [Suspect]
     Indication: HYPERTENSION
     Dosage: 320 MG VAL/ 12.5 MG, HCT, QD, ORAL
     Route: 048
     Dates: start: 20061010

REACTIONS (1)
  - TACHYCARDIA [None]
